FAERS Safety Report 9414374 (Version 3)
Quarter: 2015Q2

REPORT INFORMATION
  Report Type: Report from Study
  Country: US (occurrence: US)
  Receive Date: 20130723
  Receipt Date: 20150612
  Transmission Date: 20150821
  Serious: Yes (Life-Threatening, Hospitalization, Disabling, Other)
  Sender: FDA-Public Use
  Company Number: US-ASTELLAS-2013EU006291

PATIENT
  Age: 32 Year
  Sex: Male
  Weight: 119 kg

DRUGS (20)
  1. ALBUTEROL HFA [Concomitant]
     Active Substance: ALBUTEROL SULFATE
     Indication: ASTHMA
     Dosage: 90 ?G, QID
     Route: 055
     Dates: start: 20130624
  2. ATOVAQUONE. [Concomitant]
     Active Substance: ATOVAQUONE
     Indication: ANTIFUNGAL PROPHYLAXIS
     Dosage: 10-ML-QD
     Route: 048
     Dates: start: 20130405, end: 20130628
  3. CLOBETASOL [Concomitant]
     Active Substance: CLOBETASOL
     Indication: RASH
     Dosage: 5 %, N/A
     Route: 061
     Dates: start: 20130613
  4. MAGNESIUM LACTATE [Concomitant]
     Active Substance: MAGNESIUM LACTATE
     Indication: CONSTIPATION
     Dosage: 84-MG-TID
     Route: 048
     Dates: start: 20130506
  5. PREDNISONE. [Concomitant]
     Active Substance: PREDNISONE
     Indication: PROPHYLAXIS
     Dosage: 10-MG-QD
     Route: 048
     Dates: start: 20130617, end: 20130624
  6. URSODIOL. [Concomitant]
     Active Substance: URSODIOL
     Indication: GRAFT VERSUS HOST DISEASE
  7. PROGRAF [Suspect]
     Active Substance: TACROLIMUS\TACROLIMUS ANHYDROUS
     Indication: IMMUNOSUPPRESSION
     Dosage: 0.5-MG-Q12H
     Route: 048
     Dates: start: 20130506, end: 20130624
  8. PANTOPRAZOLE [Concomitant]
     Active Substance: PANTOPRAZOLE SODIUM
     Indication: PROPHYLAXIS
     Dosage: 40-MG-QD
     Route: 048
     Dates: start: 20130617
  9. SENNOSIDES A+B [Concomitant]
     Active Substance: SENNOSIDES A AND B
     Indication: CONSTIPATION
     Dosage: 17.2-MG-QHS
     Route: 048
     Dates: start: 20130506
  10. BACTRIM DS [Concomitant]
     Active Substance: SULFAMETHOXAZOLE\TRIMETHOPRIM
     Indication: PROPHYLAXIS
     Dosage: 160-MG-Q3WEEK
     Route: 048
     Dates: start: 20130617
  11. URSODIOL. [Concomitant]
     Active Substance: URSODIOL
     Indication: GRAFT VERSUS HOST DISEASE
     Dosage: 300-MG-TID
     Route: 048
     Dates: start: 20130506, end: 20130624
  12. PROGRAF [Suspect]
     Active Substance: TACROLIMUS\TACROLIMUS ANHYDROUS
     Dosage: 1-MG-Q12H
     Route: 048
     Dates: start: 20130603
  13. PREDNISONE. [Concomitant]
     Active Substance: PREDNISONE
     Dosage: 20-MG-QD
     Route: 048
     Dates: start: 20130617
  14. URSODIOL. [Concomitant]
     Active Substance: URSODIOL
     Indication: IMMUNOSUPPRESSION
  15. PROGRAF [Suspect]
     Active Substance: TACROLIMUS\TACROLIMUS ANHYDROUS
     Dosage: 0.5 MG, Q12 HOURS
     Route: 048
     Dates: start: 20130603
  16. DRONABINOL. [Concomitant]
     Active Substance: DRONABINOL
     Indication: GRAFT VERSUS HOST DISEASE IN GASTROINTESTINAL TRACT
     Dosage: 2.5-MG-BID
     Route: 048
     Dates: start: 20130628
  17. LEVOFLOXACIN. [Concomitant]
     Active Substance: LEVOFLOXACIN
     Indication: PROPHYLAXIS
     Dosage: 500-MG-QD
     Route: 048
     Dates: start: 20130628
  18. PLACEBO [Suspect]
     Active Substance: UNSPECIFIED INGREDIENT
     Indication: PROPHYLAXIS
     Dosage: 1 TABLET, QD
     Route: 048
     Dates: start: 20130419, end: 20130513
  19. URSODIOL. [Concomitant]
     Active Substance: URSODIOL
     Indication: IMMUNOSUPPRESSION
  20. VORICONAZOLE. [Concomitant]
     Active Substance: VORICONAZOLE
     Indication: ANTIBIOTIC PROPHYLAXIS
     Dosage: 200-MG-Q12H
     Route: 048
     Dates: start: 20130506

REACTIONS (1)
  - Acute graft versus host disease in intestine [Recovered/Resolved]

NARRATIVE: CASE EVENT DATE: 20130704
